FAERS Safety Report 7676483-0 (Version None)
Quarter: 2011Q3

REPORT INFORMATION
  Report Type: 
  Country: None (occurrence: None)
  Receive Date: 20110809
  Receipt Date: 20110809
  Transmission Date: 20111222
  Serious: Yes (Hospitalization)
  Sender: FDA-Public Use
  Company Number: None

PATIENT
  Sex: Female
  Weight: 62.95 kg

DRUGS (2)
  1. TAXOL [Suspect]
     Dosage: 223 MG
     Dates: end: 20110728
  2. CISPLATIN [Suspect]
     Dosage: 124 MG
     Dates: end: 20110729

REACTIONS (4)
  - PLEURAL EFFUSION [None]
  - INTESTINAL DILATATION [None]
  - PULMONARY EMBOLISM [None]
  - ABDOMINAL PAIN [None]
